FAERS Safety Report 4719308-5 (Version None)
Quarter: 2005Q3

REPORT INFORMATION
  Report Type: 
  Country: None (occurrence: None)
  Receive Date: 20050721
  Receipt Date: 20050110
  Transmission Date: 20060218
  Serious: No
  Sender: FDA-Public Use
  Company Number: US-GLAXOSMITHKLINE-A0540057A

PATIENT
  Age: 37 Year
  Sex: Female

DRUGS (2)
  1. MALARONE [Suspect]
     Indication: MALARIA
     Route: 048
     Dates: start: 20041217, end: 20050102
  2. NO CONCURRENT MEDICATION [Concomitant]

REACTIONS (2)
  - EYE DISORDER [None]
  - VISUAL DISTURBANCE [None]
